FAERS Safety Report 4745828-3 (Version None)
Quarter: 2005Q3

REPORT INFORMATION
  Report Type: 
  Country: None (occurrence: None)
  Receive Date: 20050815
  Receipt Date: 20050815
  Transmission Date: 20060218
  Serious: Yes (Hospitalization)
  Sender: FDA-Public Use
  Company Number: None

PATIENT
  Age: 52 Year
  Sex: Female
  Weight: 86.1834 kg

DRUGS (2)
  1. CAPCECITABINE [Suspect]
     Indication: COLON CANCER
     Dosage: 1250MG/M2  DAILY ORAL
     Route: 048
     Dates: start: 20050724, end: 20050807
  2. IRINOTECAN-CPT-11- [Suspect]
     Dosage: 50MG/M2  WEEKLY X 4 INTRAVENOUS
     Route: 042

REACTIONS (3)
  - ABDOMINAL PAIN [None]
  - DIARRHOEA [None]
  - FLANK PAIN [None]
